FAERS Safety Report 7471074-9 (Version None)
Quarter: 2011Q2

REPORT INFORMATION
  Report Type: 
  Country: None (occurrence: None)
  Receive Date: 20110510
  Receipt Date: 20110505
  Transmission Date: 20111010
  Serious: Yes (Hospitalization)
  Sender: FDA-Public Use
  Company Number: FR-BRISTOL-MYERS SQUIBB COMPANY-15722986

PATIENT
  Age: 80 Year
  Sex: Female

DRUGS (1)
  1. ETOPOSIDE [Suspect]
     Indication: BRONCHIAL CARCINOMA
     Dosage: 1DF:ETOPOPHOS FOR INJ 100 MG

REACTIONS (4)
  - PURPURA [None]
  - OEDEMA PERIPHERAL [None]
  - SKIN NECROSIS [None]
  - NEUTROPENIA [None]
